FAERS Safety Report 11743437 (Version 2)
Quarter: 2015Q4

REPORT INFORMATION
  Report Type: Spontaneous
  Country: US (occurrence: US)
  Receive Date: 20151116
  Receipt Date: 20151215
  Transmission Date: 20160304
  Serious: Yes (Death, Hospitalization, Other)
  Sender: FDA-Public Use
  Company Number: US-CORCEPT THERAPEUTICS INC.-US-2015CRT000703

PATIENT

DRUGS (1)
  1. KORLYM [Suspect]
     Active Substance: MIFEPRISTONE
     Indication: CUSHING^S SYNDROME
     Dosage: UNK
     Dates: start: 20131004

REACTIONS (15)
  - Death [Fatal]
  - Fluid overload [Unknown]
  - Respiratory failure [Unknown]
  - Hyperhidrosis [Unknown]
  - Traumatic lung injury [Not Recovered/Not Resolved]
  - Decreased insulin requirement [Unknown]
  - Pneumonia aspiration [Unknown]
  - Pulmonary oedema [Unknown]
  - Acute respiratory distress syndrome [Unknown]
  - Fatigue [Unknown]
  - Dyspnoea [Unknown]
  - General physical health deterioration [Unknown]
  - Oedema [Recovering/Resolving]
  - Asthenia [Unknown]
  - Hyporesponsive to stimuli [None]

NARRATIVE: CASE EVENT DATE: 201310
